FAERS Safety Report 14829774 (Version 1)
Quarter: 2018Q2

REPORT INFORMATION
  Report Type: Spontaneous
  Country: US (occurrence: US)
  Receive Date: 20180430
  Receipt Date: 20180430
  Transmission Date: 20180711
  Serious: No
  Sender: FDA-Public Use
  Company Number: US-BIOGEN-2018BI00562746

PATIENT
  Age: 4 Year
  Sex: Female

DRUGS (3)
  1. TYLENOL [Suspect]
     Active Substance: ACETAMINOPHEN
     Indication: POST LUMBAR PUNCTURE SYNDROME
     Route: 050
  2. CAFFEINE. [Suspect]
     Active Substance: CAFFEINE
     Indication: POST LUMBAR PUNCTURE SYNDROME
     Route: 050
  3. SPINRAZA [Suspect]
     Active Substance: NUSINERSEN
     Indication: SPINAL MUSCULAR ATROPHY
     Route: 065
     Dates: start: 20180417

REACTIONS (2)
  - Post lumbar puncture syndrome [Recovered/Resolved]
  - Neck pain [Recovered/Resolved]

NARRATIVE: CASE EVENT DATE: 20180417
